FAERS Safety Report 8409270 (Version 3)
Quarter: 2013Q1

REPORT INFORMATION
  Report Type: Spontaneous
  Country: BR (occurrence: BR)
  Receive Date: 20120216
  Receipt Date: 20130128
  Transmission Date: 20140127
  Serious: Yes (Hospitalization, Other)
  Sender: FDA-Public Use
  Company Number: BR-US-EMD SERONO, INC.-7112616

PATIENT
  Sex: Female

DRUGS (6)
  1. REBIF [Suspect]
     Indication: RELAPSING-REMITTING MULTIPLE SCLEROSIS
     Dates: start: 20100528, end: 20120405
  2. REBIF [Suspect]
     Dates: start: 201204
  3. VITAMINS [Concomitant]
     Indication: PRODUCT USED FOR UNKNOWN INDICATION
  4. AMYTRIL [Concomitant]
     Indication: PRODUCT USED FOR UNKNOWN INDICATION
  5. ALPRAZOLAM [Concomitant]
     Indication: PRODUCT USED FOR UNKNOWN INDICATION
  6. GABANEURIN (GABAPENTIN) [Concomitant]
     Indication: PRODUCT USED FOR UNKNOWN INDICATION

REACTIONS (11)
  - Multiple sclerosis relapse [Recovering/Resolving]
  - Diabetes mellitus [Recovered/Resolved]
  - Convulsion [Not Recovered/Not Resolved]
  - Neuralgia [Not Recovered/Not Resolved]
  - Syncope [Recovered/Resolved]
  - Skin discolouration [Recovered/Resolved]
  - Thrombosis [Recovered/Resolved]
  - Cognitive disorder [Recovered/Resolved]
  - Faecal incontinence [Recovered/Resolved]
  - Dry mouth [Recovered/Resolved]
  - Urinary incontinence [Recovered/Resolved]
